FAERS Safety Report 25348475 (Version 1)
Quarter: 2025Q2

REPORT INFORMATION
  Report Type: Spontaneous
  Country: IT (occurrence: IT)
  Receive Date: 20250522
  Receipt Date: 20250522
  Transmission Date: 20250716
  Serious: Yes (Hospitalization)
  Sender: NOVARTIS
  Company Number: None

PATIENT
  Age: 64 Year
  Sex: Female

DRUGS (1)
  1. MEKINIST [Suspect]
     Active Substance: TRAMETINIB DIMETHYL SULFOXIDE
     Indication: Ovarian neoplasm
     Route: 048
     Dates: start: 20240812

REACTIONS (3)
  - Cellulitis [Recovering/Resolving]
  - Rash [Recovering/Resolving]
  - Joint warmth [Recovering/Resolving]

NARRATIVE: CASE EVENT DATE: 20250406
